FAERS Safety Report 18575248 (Version 3)
Quarter: 2020Q4

REPORT INFORMATION
  Report Type: Spontaneous
  Country: FR (occurrence: FR)
  Receive Date: 20201203
  Receipt Date: 20201217
  Transmission Date: 20210114
  Serious: Yes (Death, Life-Threatening)
  Sender: FDA-Public Use
  Company Number: FR-MYLANLABS-2020M1098065

PATIENT
  Age: 58 Year
  Sex: Male
  Weight: 68 kg

DRUGS (2)
  1. PARACETAMOL [Suspect]
     Active Substance: ACETAMINOPHEN
     Indication: TOOTHACHE
  2. PARACETAMOL [Suspect]
     Active Substance: ACETAMINOPHEN
     Indication: GAIT DISTURBANCE
     Dosage: 19 GRAM, QD
     Route: 048
     Dates: start: 20201004, end: 20201004

REACTIONS (3)
  - Acute hepatic failure [Fatal]
  - Hepatic encephalopathy [Fatal]
  - Overdose [Fatal]

NARRATIVE: CASE EVENT DATE: 20201004
